FAERS Safety Report 20444296 (Version 19)
Quarter: 2023Q4

REPORT INFORMATION
  Report Type: Spontaneous
  Country: US (occurrence: US)
  Receive Date: 20220208
  Receipt Date: 20231128
  Transmission Date: 20240110
  Serious: Yes (Hospitalization, Other)
  Sender: FDA-Public Use
  Company Number: US-PFIZER INC-202200193175

PATIENT
  Age: 69 Year
  Sex: Male
  Weight: 142.43 kg

DRUGS (9)
  1. BRAFTOVI [Suspect]
     Active Substance: ENCORAFENIB
     Indication: Papillary thyroid cancer
     Dosage: UNK
     Dates: start: 202205
  2. BRAFTOVI [Suspect]
     Active Substance: ENCORAFENIB
     Indication: Thyroid cancer
     Dosage: 450 MG, DAILY (TAKE 6 CAPSULES (450 MG) BY MOUTH DAILY)
     Route: 048
  3. BRAFTOVI [Suspect]
     Active Substance: ENCORAFENIB
     Dosage: 75 MG
     Dates: end: 202306
  4. MEKTOVI [Suspect]
     Active Substance: BINIMETINIB
     Indication: Papillary thyroid cancer
     Dosage: 15 MG
  5. MEKTOVI [Suspect]
     Active Substance: BINIMETINIB
     Indication: Thyroid cancer
     Dosage: 15 MG, 1X/DAY
  6. MEKTOVI [Suspect]
     Active Substance: BINIMETINIB
     Dosage: UNK
     Dates: start: 202205
  7. MEKTOVI [Suspect]
     Active Substance: BINIMETINIB
     Dosage: 45 MG, 2X/DAY (EVERY 12 (TWELVE) HOURS)
     Route: 048
     Dates: end: 202306
  8. CELEBREX [Concomitant]
     Active Substance: CELECOXIB
     Dosage: UNK
  9. ELIQUIS [Concomitant]
     Active Substance: APIXABAN
     Dosage: UNK

REACTIONS (24)
  - Haemorrhage [Unknown]
  - Atrial fibrillation [Recovered/Resolved]
  - Dyspnoea [Unknown]
  - Lymphadenopathy [Unknown]
  - Laryngectomy [Unknown]
  - Blood potassium increased [Unknown]
  - Deafness [Unknown]
  - Middle ear effusion [Unknown]
  - Neoplasm progression [Unknown]
  - Wheezing [Unknown]
  - Fatigue [Unknown]
  - Blood pressure increased [Unknown]
  - Dizziness [Unknown]
  - Back injury [Unknown]
  - Carpal tunnel syndrome [Unknown]
  - Blood glucose increased [Unknown]
  - Speech disorder [Unknown]
  - Musculoskeletal pain [Unknown]
  - White blood cell count increased [Unknown]
  - Inflammation [Unknown]
  - Anaemia [Not Recovered/Not Resolved]
  - Asthenia [Unknown]
  - Off label use [Unknown]
  - Product dispensing issue [Unknown]

NARRATIVE: CASE EVENT DATE: 20230101
